FAERS Safety Report 17486100 (Version 3)
Quarter: 2020Q1

REPORT INFORMATION
  Report Type: Report from Study
  Country: DE (occurrence: DE)
  Receive Date: 20200303
  Receipt Date: 20200318
  Transmission Date: 20200409
  Serious: Yes (Hospitalization)
  Sender: FDA-Public Use
  Company Number: DE-ROCHE-2547270

PATIENT
  Age: 57 Year
  Sex: Female
  Weight: 53 kg

DRUGS (25)
  1. PERTUZUMAB. [Suspect]
     Active Substance: PERTUZUMAB
     Indication: HER-2 POSITIVE BREAST CANCER
     Dosage: DOSE OF LAST PERTUZUMAB ADMINISTERED PRIOR TO AE/SAE ONSET: 840 MG, DATE OF MOST RECENT DOSE OF PERT
     Route: 042
     Dates: start: 20200203
  2. PACLITAXEL. [Suspect]
     Active Substance: PACLITAXEL
     Indication: HER-2 POSITIVE BREAST CANCER
     Dosage: DOSE OF LAST PACLITAXEL ADMINISTERED PRIOR TO AE ONSET: 132.80 MG, DATE OF MOST RECENT DOSE OF PACLI
     Route: 042
     Dates: start: 20200203
  3. THIAMAZOL [Concomitant]
     Active Substance: METHIMAZOLE
     Indication: HYPERTHYROIDISM
     Route: 065
     Dates: start: 20200208, end: 20200220
  4. ERYTHROCYTES [Concomitant]
     Active Substance: HUMAN RED BLOOD CELL
     Indication: HAEMOGLOBIN DECREASED
     Route: 065
     Dates: start: 20200219, end: 20200219
  5. TRASTUZUMAB. [Suspect]
     Active Substance: TRASTUZUMAB
     Indication: HER-2 POSITIVE BREAST CANCER
     Dosage: DOSE OF LAST TRASTUZUMAB ADMINISTERED PRIOR TO AE/SAE ONSET: 464 MG, DATE OF MOST RECENT DOSE OF TRA
     Route: 041
     Dates: start: 20200203
  6. CEFPODOXIME [Concomitant]
     Active Substance: CEFPODOXIME
     Indication: URINARY TRACT INFECTION
     Route: 065
     Dates: start: 20200203, end: 20200210
  7. CLEXANE [Concomitant]
     Active Substance: ENOXAPARIN SODIUM
     Indication: THROMBOSIS PROPHYLAXIS
     Route: 065
     Dates: start: 20200214, end: 20200226
  8. DOXORUBICIN [Suspect]
     Active Substance: DOXORUBICIN
     Indication: HER-2 POSITIVE BREAST CANCER
     Dosage: DOSE OF LAST DOXORUBICIN ADMINISTERED PRIOR TO AE/SAE ONSET: 99.6 MG, DATE OF MOST RECENT DOSE OF DO
     Route: 042
     Dates: start: 20191209
  9. THIAMAZOL [Concomitant]
     Active Substance: METHIMAZOLE
     Indication: HYPERTHYROIDISM
     Route: 065
     Dates: start: 20200221, end: 20200226
  10. ATEZOLIZUMAB. [Suspect]
     Active Substance: ATEZOLIZUMAB
     Indication: HER-2 POSITIVE BREAST CANCER
     Dosage: DATE OF MOST RECENT DOSE PRIOR TO AE/SAE ONSET: 20/JAN/2020.
     Route: 042
     Dates: start: 20191209
  11. DECORTIN [Concomitant]
     Active Substance: PREDNISONE
     Route: 048
     Dates: start: 20200226, end: 20200302
  12. CYCLOPHOSPHAMIDE. [Suspect]
     Active Substance: CYCLOPHOSPHAMIDE
     Indication: HER-2 POSITIVE BREAST CANCER
     Dosage: DOSE OF LAST CYCLOPHOSPHAMIDE ADMINISTERED PRIOR TO AE/SAE ONSET: 996 MG, DATE OF MOST RECENT DOSE O
     Route: 042
     Dates: start: 20191209
  13. THIAMAZOL [Concomitant]
     Active Substance: METHIMAZOLE
     Route: 065
     Dates: start: 20200227
  14. STEROFUNDIN [Concomitant]
     Active Substance: CALCIUM CHLORIDE\MAGNESIUM CHLORIDE\POTASSIUM CHLORIDE\SODIUM ACETATE\SODIUM CHLORIDE
     Route: 065
     Dates: start: 20200217, end: 20200219
  15. DECORTIN [Concomitant]
     Active Substance: PREDNISONE
     Indication: PNEUMONITIS
     Route: 048
     Dates: start: 20200218, end: 20200225
  16. GRANISETRON [Concomitant]
     Active Substance: GRANISETRON
     Indication: NAUSEA
     Route: 065
     Dates: start: 20191209
  17. PANTOPRAZOLE [Concomitant]
     Active Substance: PANTOPRAZOLE
     Indication: ABDOMINAL PAIN UPPER
     Route: 065
     Dates: start: 20191217
  18. NEULASTA [Concomitant]
     Active Substance: PEGFILGRASTIM
     Route: 065
     Dates: start: 20191209
  19. SPASMEX [TROSPIUM CHLORIDE] [Concomitant]
     Indication: POLLAKIURIA
     Route: 065
     Dates: start: 20200120, end: 20200210
  20. MESNA. [Concomitant]
     Active Substance: MESNA
     Indication: PROPHYLAXIS
     Route: 042
     Dates: start: 20191209
  21. DEXAMETHASONE. [Concomitant]
     Active Substance: DEXAMETHASONE
     Indication: NAUSEA
     Route: 065
     Dates: start: 20191209
  22. MOMETASON [Concomitant]
     Active Substance: MOMETASONE FUROATE
     Route: 065
     Dates: start: 20200120, end: 20200121
  23. CARBIMAZOL [Concomitant]
     Active Substance: CARBIMAZOLE
     Indication: HYPERTHYROIDISM
     Route: 065
     Dates: start: 20200203, end: 20200208
  24. COTRIM FORTE [Concomitant]
     Active Substance: SULFAMETHOXAZOLE\TRIMETHOPRIM
     Route: 065
     Dates: start: 20200219
  25. DECORTIN [Concomitant]
     Active Substance: PREDNISONE
     Route: 048
     Dates: start: 20200302

REACTIONS (2)
  - Hypophysitis [Recovered/Resolved]
  - Pneumonitis [Not Recovered/Not Resolved]

NARRATIVE: CASE EVENT DATE: 20200207
